FAERS Safety Report 9261326 (Version 2)
Quarter: 2013Q2

REPORT INFORMATION
  Report Type: Spontaneous
  Country: DE (occurrence: DE)
  Receive Date: 20130429
  Receipt Date: 20130515
  Transmission Date: 20140414
  Serious: Yes (Other)
  Sender: FDA-Public Use
  Company Number: DE-BAYER-2013-044878

PATIENT
  Age: 31 Year
  Sex: Female
  Weight: 54 kg

DRUGS (1)
  1. MIRENA [Suspect]
     Dosage: 20 MCG/24HR, CONT
     Route: 015
     Dates: start: 201010, end: 2013

REACTIONS (5)
  - Pregnancy with contraceptive device [Recovered/Resolved]
  - Pregnancy of unknown location [Recovered/Resolved]
  - Drug ineffective [None]
  - Chlamydial cervicitis [None]
  - Ultrasound uterus abnormal [Recovered/Resolved]
